FAERS Safety Report 7961690-X (Version None)
Quarter: 2011Q4

REPORT INFORMATION
  Report Type: 
  Country: None (occurrence: None)
  Receive Date: 20111207
  Receipt Date: 20111201
  Transmission Date: 20120403
  Serious: Yes (Hospitalization, Other)
  Sender: FDA-Public Use
  Company Number: US-AMGEN-USASP2011063730

PATIENT
  Age: 64 Year
  Sex: Male

DRUGS (2)
  1. ENBREL [Suspect]
     Indication: PSORIASIS
     Dosage: 50 MG, QWK
     Dates: start: 20050501
  2. ENBREL [Suspect]
     Indication: PSORIATIC ARTHROPATHY

REACTIONS (8)
  - STRESS [None]
  - FATIGUE [None]
  - VASCULAR GRAFT [None]
  - PSORIASIS [None]
  - CARDIOVASCULAR DISORDER [None]
  - HYPERTENSION [None]
  - FEELING ABNORMAL [None]
  - ASTHENIA [None]
